FAERS Safety Report 6447570-X (Version None)
Quarter: 2009Q4

REPORT INFORMATION
  Report Type: 
  Country: None (occurrence: None)
  Receive Date: 20091119
  Receipt Date: 20090116
  Transmission Date: 20100525
  Serious: Yes (Hospitalization, Other)
  Sender: FDA-Public Use
  Company Number: US-AMGEN-QUU303215

PATIENT
  Sex: Female

DRUGS (1)
  1. ENBREL [Suspect]
     Indication: PSORIATIC ARTHROPATHY
     Route: 058

REACTIONS (8)
  - ASTHENIA [None]
  - BRONCHITIS [None]
  - DRUG ERUPTION [None]
  - HYPERSENSITIVITY [None]
  - HYPOTENSION [None]
  - INFLUENZA [None]
  - PNEUMONITIS [None]
  - VIRAL INFECTION [None]
